FAERS Safety Report 4286713-3 (Version None)
Quarter: 2004Q1

REPORT INFORMATION
  Report Type: 
  Country: None (occurrence: None)
  Receive Date: 20040204
  Receipt Date: 20031218
  Transmission Date: 20041129
  Serious: Yes (Other)
  Sender: FDA-Public Use
  Company Number: 2003191274ES

PATIENT
  Age: 53 Year
  Sex: Male

DRUGS (3)
  1. SOLU-MEDROL [Suspect]
     Dosage: 125 MG, QD, IV
     Route: 042
  2. MEDROL [Suspect]
     Dosage: 40 MG, QD, ORAL
     Route: 048
  3. DELTASONE [Suspect]
     Dosage: SEE IMAGE

REACTIONS (8)
  - CONFUSIONAL STATE [None]
  - CUSHING'S SYNDROME [None]
  - ENCEPHALITIS [None]
  - HEADACHE [None]
  - HYPOGONADISM [None]
  - HYPOTHYROIDISM [None]
  - PYREXIA [None]
  - WEIGHT INCREASED [None]
